FAERS Safety Report 22321539 (Version 1)
Quarter: 2023Q2

REPORT INFORMATION
  Report Type: Report from Study
  Country: US (occurrence: US)
  Receive Date: 20230515
  Receipt Date: 20230515
  Transmission Date: 20230721
  Serious: Yes (Hospitalization, Other)
  Sender: FDA-Public Use
  Company Number: US-ABBVIE-4700888

PATIENT
  Age: 58 Year
  Sex: Female
  Weight: 37 kg

DRUGS (1)
  1. CREON [Suspect]
     Active Substance: PANCRELIPASE AMYLASE\PANCRELIPASE LIPASE\PANCRELIPASE PROTEASE
     Indication: Pancreatitis
     Dosage: FORM STRENGTH 36000 UNIT??FREQUENCY TEXT ONE CAPSULE PER MEAL 3 TIMES A DAY,  DURATION TEXT: AT L...
     Route: 048

REACTIONS (2)
  - Infection [Recovered/Resolved]
  - Pancreatitis [Unknown]

NARRATIVE: CASE EVENT DATE: 20230301
